FAERS Safety Report 8439441-4 (Version None)
Quarter: 2012Q2

REPORT INFORMATION
  Report Type: 
  Country: None (occurrence: None)
  Receive Date: 20120615
  Receipt Date: 20120607
  Transmission Date: 20120825
  Serious: Yes (Hospitalization)
  Sender: FDA-Public Use
  Company Number: US-UCBSA-058037

PATIENT
  Sex: Female
  Weight: 36.3 kg

DRUGS (1)
  1. CIMZIA [Suspect]
     Indication: CROHN'S DISEASE
     Dates: start: 20090310, end: 20120419

REACTIONS (3)
  - ASTHENIA [None]
  - DIARRHOEA [None]
  - MALAISE [None]
